FAERS Safety Report 25710440 (Version 1)
Quarter: 2025Q3

REPORT INFORMATION
  Report Type: Spontaneous
  Country: EU (occurrence: EU)
  Receive Date: 20250821
  Receipt Date: 20250821
  Transmission Date: 20251021
  Serious: Yes (Other)
  Sender: CELLTRION
  Company Number: EU-STADA-01401128

PATIENT

DRUGS (5)
  1. BEVACIZUMAB [Suspect]
     Active Substance: BEVACIZUMAB
     Indication: Hepatocellular carcinoma
     Route: 065
  2. ATEZOLIZUMAB [Suspect]
     Active Substance: ATEZOLIZUMAB
     Indication: Hepatocellular carcinoma
     Route: 065
  3. ENTECAVIR [Concomitant]
     Active Substance: ENTECAVIR
     Indication: Chronic hepatitis C
     Route: 065
  4. ENTECAVIR [Concomitant]
     Active Substance: ENTECAVIR
     Indication: Hepatitis B
  5. ENTECAVIR [Concomitant]
     Active Substance: ENTECAVIR
     Indication: Hepatitis C

REACTIONS (4)
  - Condition aggravated [Recovering/Resolving]
  - Psoriasis [Recovering/Resolving]
  - Psoriasis [Recovered/Resolved]
  - Intentional product use issue [Unknown]
